FAERS Safety Report 6540491-3 (Version None)
Quarter: 2010Q1

REPORT INFORMATION
  Report Type: 
  Country: None (occurrence: None)
  Receive Date: 20100118
  Receipt Date: 20100114
  Transmission Date: 20100710
  Serious: Yes (Death)
  Sender: FDA-Public Use
  Company Number: GB-BIOGENIDEC-2009BI032438

PATIENT
  Age: 53 Year
  Sex: Male

DRUGS (1)
  1. TYSABRI [Suspect]
     Indication: RELAPSING-REMITTING MULTIPLE SCLEROSIS
     Route: 042
     Dates: start: 20080805, end: 20090901

REACTIONS (5)
  - LIVER FUNCTION TEST ABNORMAL [None]
  - OESOPHAGEAL CANCER METASTATIC [None]
  - PYREXIA [None]
  - TACHYCARDIA [None]
  - VOMITING [None]
